FAERS Safety Report 12878313 (Version 1)
Quarter: 2016Q4

REPORT INFORMATION
  Report Type: Spontaneous
  Country: US (occurrence: US)
  Receive Date: 20161024
  Receipt Date: 20161024
  Transmission Date: 20170207
  Serious: No
  Sender: FDA-Public Use
  Company Number: US-009507513-1610USA005434

PATIENT
  Sex: Female
  Weight: 58.05 kg

DRUGS (2)
  1. PROVENTIL [Concomitant]
     Active Substance: ALBUTEROL
  2. NEXPLANON [Suspect]
     Active Substance: ETONOGESTREL
     Indication: CONTRACEPTION
     Dosage: 1 ROD / 3 YEARS
     Route: 059
     Dates: start: 20160622

REACTIONS (3)
  - Device deployment issue [Not Recovered/Not Resolved]
  - Migration of implanted drug [Not Recovered/Not Resolved]
  - Pain [Not Recovered/Not Resolved]

NARRATIVE: CASE EVENT DATE: 2016
